FAERS Safety Report 6440864-3 (Version None)
Quarter: 2009Q4

REPORT INFORMATION
  Report Type: 
  Country: None (occurrence: None)
  Receive Date: 20091116
  Receipt Date: 20091105
  Transmission Date: 20100525
  Serious: Yes (Hospitalization)
  Sender: FDA-Public Use
  Company Number: JP-ELI_LILLY_AND_COMPANY-JP200908003849

PATIENT
  Sex: Male
  Weight: 78 kg

DRUGS (7)
  1. ALIMTA [Suspect]
     Indication: NON-SMALL CELL LUNG CANCER STAGE IIIA
     Dosage: 950 MG, OTHER
     Route: 042
     Dates: start: 20090803, end: 20090803
  2. CARBOPLATIN [Interacting]
     Indication: NON-SMALL CELL LUNG CANCER STAGE IIIA
     Dosage: 600 MG, UNK
     Route: 042
     Dates: start: 20090803, end: 20090803
  3. FOLIC ACID [Concomitant]
  4. VITAMIN B-12 [Concomitant]
  5. GRANISETRON HCL [Concomitant]
     Indication: PROPHYLAXIS
     Dosage: 3 MG, UNK
     Route: 042
     Dates: start: 20090803, end: 20090803
  6. DEXART [Concomitant]
     Indication: PROPHYLAXIS
     Dosage: 8 MG, UNK
     Route: 042
     Dates: start: 20090803, end: 20090803
  7. PRIMPERAN /00041901/ [Concomitant]
     Indication: PROPHYLAXIS
     Dosage: 10 MG, UNK
     Route: 042
     Dates: start: 20090803, end: 20090803

REACTIONS (2)
  - DRUG INTERACTION [None]
  - INAPPROPRIATE ANTIDIURETIC HORMONE SECRETION [None]
